FAERS Safety Report 22540978 (Version 1)
Quarter: 2023Q2

REPORT INFORMATION
  Report Type: Spontaneous
  Country: CN (occurrence: CN)
  Receive Date: 20230609
  Receipt Date: 20230609
  Transmission Date: 20230722
  Serious: Yes (Other)
  Sender: FDA-Public Use
  Company Number: CN-PFIZER INC-PV202300100892

PATIENT
  Age: 81 Year
  Sex: Female
  Weight: 63 kg

DRUGS (1)
  1. NIRMATRELVIR\RITONAVIR [Suspect]
     Active Substance: NIRMATRELVIR\RITONAVIR
     Indication: COVID-19 treatment
     Dosage: 1 TABLET, 1X/DAY
     Route: 048
     Dates: start: 20230523, end: 20230528

REACTIONS (4)
  - Hepatic function abnormal [Recovering/Resolving]
  - Drug-induced liver injury [Recovering/Resolving]
  - Incorrect dose administered [Unknown]
  - Off label use [Unknown]

NARRATIVE: CASE EVENT DATE: 20230523
